FAERS Safety Report 4827039-6 (Version None)
Quarter: 2005Q4

REPORT INFORMATION
  Report Type: 
  Country: None (occurrence: None)
  Receive Date: 20051014
  Receipt Date: 20050721
  Transmission Date: 20060501
  Serious: No
  Sender: FDA-Public Use
  Company Number: 2005SP000682

PATIENT
  Age: 50 Year
  Sex: Female
  Weight: 77.1115 kg

DRUGS (6)
  1. LUNESTA [Suspect]
     Dosage: 2 MG; HS; ORAL
     Route: 048
     Dates: start: 20050509, end: 20050509
  2. CLONOPIN [Concomitant]
  3. PLENDIL [Concomitant]
  4. DEPAKOTE [Concomitant]
  5. LITHOBID [Concomitant]
  6. WELLBUTRIN [Concomitant]

REACTIONS (1)
  - DYSGEUSIA [None]
